FAERS Safety Report 9610416 (Version 1)
Quarter: 2013Q4

REPORT INFORMATION
  Report Type: Spontaneous
  Country: US (occurrence: US)
  Receive Date: 20131009
  Receipt Date: 20131009
  Transmission Date: 20140711
  Serious: No
  Sender: FDA-Public Use
  Company Number: US-PFIZER INC-2013286709

PATIENT
  Age: 85 Year
  Sex: Female
  Weight: 58.96 kg

DRUGS (4)
  1. CELEBREX [Suspect]
     Indication: PAIN IN EXTREMITY
     Dosage: 200 MG, 2X/DAY
     Route: 048
     Dates: start: 20131004
  2. ALLEGRA [Concomitant]
     Indication: SNEEZING
     Dosage: 90 MG, AS NEEDED
  3. ALEVE [Concomitant]
     Dosage: 220 MG, AS NEEDED
  4. BELLADONNA AND PHENOBARBITONE [Concomitant]
     Dosage: UNK, AS NEEDED

REACTIONS (1)
  - Headache [Unknown]
